FAERS Safety Report 12988804 (Version 1)
Quarter: 2016Q4

REPORT INFORMATION
  Report Type: Report from Study
  Country: US (occurrence: US)
  Receive Date: 20161130
  Receipt Date: 20161130
  Transmission Date: 20170207
  Serious: Yes (Hospitalization)
  Sender: FDA-Public Use
  Company Number: US-BIOGEN-2010BI036257

PATIENT
  Age: 52 Year
  Sex: Female
  Weight: 79 kg

DRUGS (1)
  1. AVONEX [Suspect]
     Active Substance: INTERFERON BETA-1A
     Indication: MULTIPLE SCLEROSIS
     Route: 030
     Dates: start: 20080108, end: 20151101

REACTIONS (37)
  - Arthritis infective [Recovered/Resolved]
  - Arthritis [Recovered/Resolved]
  - Gout [Not Recovered/Not Resolved]
  - Injection site haemorrhage [Recovered/Resolved]
  - Multiple sclerosis [Not Recovered/Not Resolved]
  - Asthenia [Unknown]
  - Hyperthyroidism [Not Recovered/Not Resolved]
  - Headache [Recovered/Resolved]
  - Fear [Not Recovered/Not Resolved]
  - Coordination abnormal [Not Recovered/Not Resolved]
  - Dyspepsia [Recovered/Resolved]
  - General symptom [Not Recovered/Not Resolved]
  - Delirium [Recovered/Resolved]
  - Multiple sclerosis relapse [Recovered/Resolved]
  - Amnesia [Not Recovered/Not Resolved]
  - Blood pressure increased [Recovered/Resolved]
  - Blood glucose increased [Recovered/Resolved]
  - Burning sensation [Recovered/Resolved]
  - Chills [Recovered/Resolved]
  - Abnormal behaviour [Recovered/Resolved]
  - Restlessness [Not Recovered/Not Resolved]
  - Clumsiness [Not Recovered/Not Resolved]
  - Pain [Not Recovered/Not Resolved]
  - Alopecia [Unknown]
  - Joint swelling [Recovered/Resolved]
  - Chest pain [Recovered/Resolved]
  - Arthralgia [Not Recovered/Not Resolved]
  - Neuropathy peripheral [Not Recovered/Not Resolved]
  - Insomnia [Recovered/Resolved]
  - Pruritus [Not Recovered/Not Resolved]
  - Influenza like illness [Recovered/Resolved]
  - Memory impairment [Not Recovered/Not Resolved]
  - Procedural pain [Recovered/Resolved]
  - Hypoaesthesia [Not Recovered/Not Resolved]
  - Fatigue [Unknown]
  - Pain in extremity [Recovered/Resolved]
  - Nasopharyngitis [Not Recovered/Not Resolved]

NARRATIVE: CASE EVENT DATE: 2008
